FAERS Safety Report 9918714 (Version 3)
Quarter: 2014Q1

REPORT INFORMATION
  Report Type: Report from Study
  Country: TH (occurrence: TH)
  Receive Date: 20140224
  Receipt Date: 20140225
  Transmission Date: 20141002
  Serious: Yes (Hospitalization)
  Sender: FDA-Public Use
  Company Number: TH-ROCHE-1162403

PATIENT
  Age: 49 Year
  Sex: Male
  Weight: 50 kg

DRUGS (16)
  1. OBINUTUZUMAB [Suspect]
     Indication: DIFFUSE LARGE B-CELL LYMPHOMA
     Dosage: LAST VOLUME TAKEN 250ML AT DOSE CONCENTRATION 4/MG/ML, DATE OF LAST DOSE PRIOR TO SAE 20/NOV/2012
     Route: 042
     Dates: start: 20121002
  2. CYCLOPHOSPHAMIDE [Suspect]
     Indication: DIFFUSE LARGE B-CELL LYMPHOMA
     Dosage: LAST DOSE 1170MG, DATE OF LAST DOSE PRIOR TO SAE 20/NOV/2012
     Route: 042
     Dates: start: 20121002
  3. DOXORUBICIN [Suspect]
     Indication: DIFFUSE LARGE B-CELL LYMPHOMA
     Dosage: LAST DOSE 78MG, DATE OF LAST DOSE PRIOR TO SAE 20/NOV/2012
     Route: 042
     Dates: start: 20121002
  4. VINCRISTINE [Suspect]
     Indication: DIFFUSE LARGE B-CELL LYMPHOMA
     Dosage: LAST DOSE 2MG, DATE OF LAST DOSE PRIOR TOS SAE 20/NOV/2012
     Route: 042
     Dates: start: 20121002
  5. PREDNISOLONE [Suspect]
     Indication: DIFFUSE LARGE B-CELL LYMPHOMA
     Dosage: LAST DOSE 100MG, DATE OF LAST DOSE PRIOR TO SAE 24/NOV/2012
     Route: 048
     Dates: start: 20121002
  6. DEXAMETHASONE [Concomitant]
     Route: 065
     Dates: start: 20121002, end: 20130305
  7. PIRITON [Concomitant]
     Route: 065
     Dates: start: 20121002, end: 20130305
  8. PARACETAMOL [Concomitant]
     Route: 065
     Dates: start: 20121002, end: 20130305
  9. ONSIA [Concomitant]
     Route: 065
     Dates: start: 20121002, end: 20130305
  10. ONSIA [Concomitant]
     Route: 065
     Dates: start: 20121002, end: 20130309
  11. SENOKOT [Concomitant]
     Route: 065
     Dates: start: 20121002, end: 20130309
  12. BACTRIM [Concomitant]
     Route: 065
     Dates: start: 20121002, end: 20130401
  13. ACYCLOVIR [Concomitant]
     Route: 065
     Dates: start: 20121002, end: 20130401
  14. CYPROHEPTADINE [Concomitant]
     Route: 065
     Dates: start: 20121002, end: 20130430
  15. AMOXYCILLIN [Concomitant]
     Route: 065
     Dates: start: 20121113, end: 20121126
  16. KLACID UNO [Concomitant]
     Route: 065
     Dates: start: 20121113, end: 20121126

REACTIONS (2)
  - Intestinal obstruction [Recovered/Resolved]
  - Neutropenia [Recovered/Resolved]
